FAERS Safety Report 9976889 (Version 1)
Quarter: 2014Q1

REPORT INFORMATION
  Report Type: Report from Study
  Country: US (occurrence: US)
  Receive Date: 20140306
  Receipt Date: 20140306
  Transmission Date: 20141002
  Serious: No
  Sender: FDA-Public Use
  Company Number: US-ABBVIE-13P-163-1167715-00

PATIENT
  Age: 34 Year
  Sex: Female

DRUGS (1)
  1. HUMIRA [Suspect]
     Indication: ANKYLOSING SPONDYLITIS
     Route: 058
     Dates: start: 20131101

REACTIONS (5)
  - Vaginal haemorrhage [Unknown]
  - Epistaxis [Unknown]
  - Lymphadenopathy [Unknown]
  - Epistaxis [Unknown]
  - Dysphagia [Unknown]
